FAERS Safety Report 6993071-X (Version None)
Quarter: 2010Q3

REPORT INFORMATION
  Report Type: 
  Country: None (occurrence: None)
  Receive Date: 20100917
  Receipt Date: 20100128
  Transmission Date: 20110219
  Serious: No
  Sender: FDA-Public Use
  Company Number: US-ASTRAZENECA-2010SE04048

PATIENT

DRUGS (3)
  1. SEROQUEL XR [Suspect]
     Route: 048
     Dates: start: 20080101
  2. DIOVAN [Concomitant]
     Indication: BLOOD PRESSURE
  3. BACTRIM [Concomitant]
     Indication: INFECTION

REACTIONS (4)
  - HYPERTENSION [None]
  - INFECTION [None]
  - SOMNAMBULISM [None]
  - SPEECH DISORDER [None]
